FAERS Safety Report 8184756-0 (Version None)
Quarter: 2012Q1

REPORT INFORMATION
  Report Type: 
  Country: None (occurrence: None)
  Receive Date: 20120305
  Receipt Date: 20120305
  Transmission Date: 20120608
  Serious: Yes (Other)
  Sender: FDA-Public Use
  Company Number: None

PATIENT
  Age: 56 Year
  Sex: Male
  Weight: 89.811 kg

DRUGS (1)
  1. CRESTOR [Suspect]
     Indication: BLOOD CHOLESTEROL INCREASED
     Dosage: 10 MG
     Dates: start: 20110301, end: 20120105

REACTIONS (7)
  - DYSPNOEA [None]
  - HYPERTENSION [None]
  - BACK PAIN [None]
  - MUSCLE CONTRACTIONS INVOLUNTARY [None]
  - WEIGHT DECREASED [None]
  - MUSCLE SPASMS [None]
  - MUSCLE ATROPHY [None]
